FAERS Safety Report 5320836-2 (Version None)
Quarter: 2007Q2

REPORT INFORMATION
  Report Type: 
  Country: None (occurrence: None)
  Receive Date: 20070509
  Receipt Date: 20070427
  Transmission Date: 20071010
  Serious: Yes (Hospitalization, Disabling, Other)
  Sender: FDA-Public Use
  Company Number: US-MERCK-0605USA04047

PATIENT
  Age: 72 Year
  Sex: Female
  Weight: 98 kg

DRUGS (13)
  1. FOSAMAX [Suspect]
     Indication: OSTEOPOROSIS
     Route: 048
     Dates: start: 19990427, end: 20060401
  2. FOSAMAX [Suspect]
     Route: 048
  3. FOSAMAX [Suspect]
     Indication: FRACTURE
     Route: 048
     Dates: start: 19990427, end: 20060401
  4. FOSAMAX [Suspect]
     Route: 048
  5. PRIMIDONE [Concomitant]
     Route: 065
     Dates: start: 20001101, end: 20030201
  6. ALBUTEROL [Concomitant]
     Indication: CHRONIC OBSTRUCTIVE PULMONARY DISEASE
     Route: 065
     Dates: start: 20001101
  7. COUMADIN [Concomitant]
     Indication: ANTICOAGULANT THERAPY
     Route: 065
     Dates: start: 20001101
  8. DIGITEK [Concomitant]
     Indication: HEART RATE INCREASED
     Route: 065
     Dates: start: 20001101
  9. LASIX [Concomitant]
     Indication: HYPERTENSION
     Route: 065
     Dates: start: 20001101
  10. ASPIRIN [Concomitant]
     Route: 065
  11. VITAMINS (UNSPECIFIED) [Concomitant]
     Route: 065
  12. OXYGEN [Concomitant]
     Route: 065
  13. ALBUTEROL [Concomitant]
     Route: 065

REACTIONS (20)
  - ANXIETY [None]
  - BREAST CANCER [None]
  - CARDIAC DISORDER [None]
  - CHEST DISCOMFORT [None]
  - CHEST PAIN [None]
  - GOUT [None]
  - HYPERSENSITIVITY [None]
  - LOCALISED INFECTION [None]
  - MENISCUS LESION [None]
  - OEDEMA PERIPHERAL [None]
  - OSTEOARTHRITIS [None]
  - OSTEOMYELITIS [None]
  - OSTEONECROSIS [None]
  - RASH MACULO-PAPULAR [None]
  - RASH PRURITIC [None]
  - SLEEP DISORDER [None]
  - SPINAL FRACTURE [None]
  - URINARY TRACT INFECTION [None]
  - URTICARIA [None]
  - VASCULITIS [None]
